FAERS Safety Report 18304439 (Version 1)
Quarter: 2020Q3

REPORT INFORMATION
  Report Type: Spontaneous
  Country: GB (occurrence: GB)
  Receive Date: 20200924
  Receipt Date: 20200924
  Transmission Date: 20201103
  Serious: Yes (Other)
  Sender: FDA-Public Use
  Company Number: GB-ACCORD-202453

PATIENT
  Age: 77 Year
  Sex: Male
  Weight: 92 kg

DRUGS (12)
  1. DIGOXIN. [Concomitant]
     Active Substance: DIGOXIN
     Dates: start: 20200511
  2. TAMSULOSIN [Concomitant]
     Active Substance: TAMSULOSIN
     Dates: start: 20200511
  3. EDOXABAN [Concomitant]
     Active Substance: EDOXABAN TOSYLATE
     Dosage: THIS IS AN ANTICOA...
     Dates: start: 20200511
  4. PARACETAMOL [Concomitant]
     Active Substance: ACETAMINOPHEN
     Dosage: TAKE ONE OR TWO TABLETS FOUR TIMES A DAY.
     Dates: start: 20200117
  5. FUROSEMIDE. [Concomitant]
     Active Substance: FUROSEMIDE
     Dosage: EACH MORNING.
     Dates: start: 20200511
  6. TRAMADOL. [Concomitant]
     Active Substance: TRAMADOL
     Dosage: TAKE ONE OR TWO EVERY FOUR TO SIX HOUR...
     Dates: start: 20200716, end: 20200813
  7. BISOPROLOL [Concomitant]
     Active Substance: BISOPROLOL
     Dates: start: 20200511
  8. PREDNISOLONE. [Concomitant]
     Active Substance: PREDNISOLONE
     Dosage: EVERY MORNING.
     Dates: start: 20200817
  9. OMEPRAZOLE. [Concomitant]
     Active Substance: OMEPRAZOLE
     Dates: start: 20200511
  10. GABAPENTIN. [Concomitant]
     Active Substance: GABAPENTIN
     Dates: start: 20200117
  11. ALLOPURINOL. [Suspect]
     Active Substance: ALLOPURINOL
     Indication: PRODUCT USED FOR UNKNOWN INDICATION
     Dates: start: 20200803
  12. COLCHICINE. [Concomitant]
     Active Substance: COLCHICINE
     Indication: PROPHYLAXIS
     Dosage: 1?2 DAILY TO PREVENT RECURRENCE OF GOUT AFTER 4 WEEKS FREE OF GOUT.
     Dates: start: 20200817

REACTIONS (2)
  - Rash macular [Recovered/Resolved]
  - Erythema [Unknown]

NARRATIVE: CASE EVENT DATE: 20200903
